FAERS Safety Report 5373852-9 (Version None)
Quarter: 2007Q2

REPORT INFORMATION
  Report Type: 
  Country: None (occurrence: None)
  Receive Date: 20070627
  Receipt Date: 20070627
  Transmission Date: 20071010
  Serious: Yes (Hospitalization)
  Sender: FDA-Public Use
  Company Number: 478106

PATIENT
  Age: 61 Year
  Sex: Female
  Weight: 88 kg

DRUGS (2)
  1. XELODA [Suspect]
     Indication: BREAST CANCER METASTATIC
     Dosage: 2 PER DAY ORAL
     Route: 048
     Dates: start: 20061209, end: 20070113
  2. BENADRYL (DIPHENHYDRAMINE) (DIPHENHYDRAMINE) [Concomitant]

REACTIONS (3)
  - DIARRHOEA [None]
  - RASH PRURITIC [None]
  - URTICARIA [None]
